FAERS Safety Report 24196230 (Version 1)
Quarter: 2024Q3

REPORT INFORMATION
  Report Type: Spontaneous
  Country: IN (occurrence: IN)
  Receive Date: 20240809
  Receipt Date: 20240809
  Transmission Date: 20241017
  Serious: Yes (Hospitalization, Other)
  Sender: VISTAPHARM
  Company Number: IN-VISTAPHARM-2024-IN-000139

PATIENT
  Age: 58 Year
  Sex: Male

DRUGS (2)
  1. GLIMEPIRIDE [Concomitant]
     Active Substance: GLIMEPIRIDE
     Dosage: 1 MG TWICE DAILY
  2. METFORMIN HYDROCHLORIDE [Suspect]
     Active Substance: METFORMIN HYDROCHLORIDE
     Indication: Diabetes mellitus
     Dosage: 500 MG TWICE DAILY

REACTIONS (1)
  - Encephalopathy [Recovered/Resolved]
